FAERS Safety Report 16556527 (Version 2)
Quarter: 2019Q3

REPORT INFORMATION
  Report Type: Report from Study
  Country: US (occurrence: US)
  Receive Date: 20190711
  Receipt Date: 20190723
  Transmission Date: 20191004
  Serious: Yes (Other)
  Sender: FDA-Public Use
  Company Number: US-MALLINCKRODT-T201903294

PATIENT
  Age: 84 Year
  Sex: Male

DRUGS (15)
  1. LASIX [Suspect]
     Active Substance: FUROSEMIDE
     Indication: HYPERTENSION
     Dosage: UNK
     Route: 065
  2. DOXAZOSIN [Concomitant]
     Active Substance: DOXAZOSIN MESYLATE
     Indication: HYPERTENSION
     Dosage: UNK, UNK
     Route: 065
  3. PEPTO-BISMOL [Concomitant]
     Active Substance: BISMUTH SUBSALICYLATE
     Indication: ABDOMINAL DISCOMFORT
     Dosage: UNK, UNK
     Route: 065
  4. METOLAZONE. [Suspect]
     Active Substance: METOLAZONE
     Indication: OEDEMA GENITAL
     Dosage: UNK, 3 TIMES WEEKLY
     Route: 065
  5. LOSARTAN. [Concomitant]
     Active Substance: LOSARTAN
     Indication: HYPERTENSION
     Dosage: UNK, UNK
     Route: 065
  6. REPOSITORY CORTICOTROPIN INJECTION [Suspect]
     Active Substance: CORTICOTROPIN
     Indication: NEPHROTIC SYNDROME
     Dosage: 80 UNITS/1 ML, (2 TIMES PER WEEK SUNDAY/WEDNESDAY)
     Route: 058
     Dates: start: 20190428
  7. REPOSITORY CORTICOTROPIN INJECTION [Suspect]
     Active Substance: CORTICOTROPIN
     Dosage: 80 UNITS/1 ML, (2 TIMES PER WEEK SUNDAY/WEDNESDAY)
     Route: 058
     Dates: start: 2019
  8. MYCOPHENOLATE [Concomitant]
     Active Substance: MYCOPHENOLIC ACID
     Indication: HYPERTENSION
     Dosage: UNK, UNK
     Route: 065
  9. REPOSITORY CORTICOTROPIN INJECTION [Suspect]
     Active Substance: CORTICOTROPIN
     Indication: PROTEINURIA
     Dosage: 40 UNITS/0.5 ML (2 TIMES PER WEEK SUNDAY/WEDNESDAY)
     Route: 058
     Dates: start: 20190414
  10. METOLAZONE. [Suspect]
     Active Substance: METOLAZONE
     Indication: OEDEMA PERIPHERAL
     Dosage: UNK, EVERY DAY (EXCEPT 2 DAYS IN A WEEK)
     Route: 065
  11. METOPROLOL. [Concomitant]
     Active Substance: METOPROLOL
     Indication: HYPERTENSION
     Dosage: UNK, UNK
     Route: 065
  12. HYDRALAZINE [Concomitant]
     Active Substance: HYDRALAZINE HYDROCHLORIDE
     Indication: HYPERTENSION
     Dosage: UNK, UNK
     Route: 065
  13. NIFEDIPINE. [Concomitant]
     Active Substance: NIFEDIPINE
     Indication: HYPERTENSION
     Dosage: UNK, UNK
     Route: 065
  14. REPOSITORY CORTICOTROPIN INJECTION [Suspect]
     Active Substance: CORTICOTROPIN
     Dosage: 40 UNITS/0.5 ML (2 TIMES PER WEEK SUNDAY/WEDNESDAY)
     Route: 058
  15. TORSEMIDE. [Suspect]
     Active Substance: TORSEMIDE
     Indication: OEDEMA PERIPHERAL
     Dosage: UNK
     Route: 065

REACTIONS (16)
  - Proteinuria [Recovering/Resolving]
  - Pollakiuria [Not Recovered/Not Resolved]
  - Injection site pain [Not Recovered/Not Resolved]
  - Weight decreased [Not Recovered/Not Resolved]
  - Oedema [Recovering/Resolving]
  - Red blood cell count decreased [Not Recovered/Not Resolved]
  - Therapeutic product effect incomplete [Not Recovered/Not Resolved]
  - Weight fluctuation [Not Recovered/Not Resolved]
  - Feeling abnormal [Recovering/Resolving]
  - Product quality issue [Not Recovered/Not Resolved]
  - Therapeutic response shortened [Unknown]
  - Dyspnoea [Not Recovered/Not Resolved]
  - Asthenia [Recovering/Resolving]
  - Hypertonic bladder [Not Recovered/Not Resolved]
  - Nausea [Recovering/Resolving]
  - Hunger [Unknown]

NARRATIVE: CASE EVENT DATE: 2019
